FAERS Safety Report 9197348 (Version 1)
Quarter: 2013Q1

REPORT INFORMATION
  Report Type: Spontaneous
  Country: US (occurrence: US)
  Receive Date: 20130328
  Receipt Date: 20130328
  Transmission Date: 20140127
  Serious: No
  Sender: FDA-Public Use
  Company Number: US-PFIZER INC-2013098202

PATIENT
  Sex: Male

DRUGS (7)
  1. LYRICA [Suspect]
     Indication: PAIN IN EXTREMITY
     Dosage: 50 MG, 1X/DAY
     Route: 048
     Dates: start: 201302, end: 201303
  2. DILTIAZEM [Concomitant]
     Indication: HYPERTENSION
     Dosage: UNK
  3. ASPIRIN [Concomitant]
     Dosage: 81 MG, UNK
  4. DOXYCYCLINE [Concomitant]
     Dosage: UNK
  5. DOXAZOSIN [Concomitant]
     Dosage: UNK
  6. PROZAC [Concomitant]
     Dosage: UNK
  7. VITAMIN B12 [Concomitant]
     Dosage: UNK

REACTIONS (1)
  - Local swelling [Not Recovered/Not Resolved]
